FAERS Safety Report 23077775 (Version 1)
Quarter: 2023Q4

REPORT INFORMATION
  Report Type: Spontaneous
  Country: US (occurrence: US)
  Receive Date: 20231018
  Receipt Date: 20231018
  Transmission Date: 20240110
  Serious: Yes (Other)
  Sender: FDA-Public Use
  Company Number: US-SANDOZ-SDZ2023US042092

PATIENT
  Age: 36 Year
  Sex: Male

DRUGS (1)
  1. MINOCYCLINE [Suspect]
     Active Substance: MINOCYCLINE HYDROCHLORIDE
     Indication: Pneumonia
     Dosage: 5-DAY COURSE
     Route: 042

REACTIONS (3)
  - Lung infiltration [Recovering/Resolving]
  - Eosinophilic pneumonia [Recovering/Resolving]
  - Eosinophilia [Recovering/Resolving]
